FAERS Safety Report 9698248 (Version 1)
Quarter: 2013Q4

REPORT INFORMATION
  Report Type: Spontaneous
  Country: US (occurrence: US)
  Receive Date: 20131120
  Receipt Date: 20131120
  Transmission Date: 20140711
  Serious: No
  Sender: FDA-Public Use
  Company Number: US-009507513-1311USA006062

PATIENT
  Sex: Male

DRUGS (4)
  1. REMERON [Suspect]
     Indication: THINKING ABNORMAL
     Dosage: 15 MG, QD
     Route: 048
     Dates: start: 20131110
  2. REMERON [Suspect]
     Indication: ANXIETY
  3. REMERON [Suspect]
     Indication: INSOMNIA
  4. ATIVAN [Concomitant]

REACTIONS (1)
  - Drug ineffective [Unknown]
